FAERS Safety Report 7534012-6 (Version None)
Quarter: 2011Q2

REPORT INFORMATION
  Report Type: 
  Country: None (occurrence: None)
  Receive Date: 20110608
  Receipt Date: 20060905
  Transmission Date: 20111010
  Serious: Yes (Other)
  Sender: FDA-Public Use
  Company Number: PHNR2006AU01148

PATIENT
  Age: 63 Year
  Sex: Male

DRUGS (5)
  1. CELLCEPT [Concomitant]
     Indication: LUNG TRANSPLANT
  2. PREDNISOLONE [Concomitant]
     Indication: LUNG TRANSPLANT
  3. PROGRAF [Concomitant]
     Indication: LUNG TRANSPLANT
  4. IMURAN [Suspect]
     Indication: LUNG TRANSPLANT
     Dates: start: 20040301
  5. NEORAL [Suspect]
     Indication: LUNG TRANSPLANT
     Dates: start: 20040301

REACTIONS (3)
  - OBLITERATIVE BRONCHIOLITIS [None]
  - LUNG TRANSPLANT REJECTION [None]
  - DRUG INEFFECTIVE [None]
